APPROVED DRUG PRODUCT: ANASTROZOLE
Active Ingredient: ANASTROZOLE
Strength: 1MG
Dosage Form/Route: TABLET;ORAL
Application: A091242 | Product #001
Applicant: IMPAX LABORATORIES INC
Approved: May 31, 2012 | RLD: No | RS: No | Type: DISCN